FAERS Safety Report 19047574 (Version 2)
Quarter: 2021Q3

REPORT INFORMATION
  Report Type: Spontaneous
  Country: US (occurrence: US)
  Receive Date: 20210323
  Receipt Date: 20210923
  Transmission Date: 20211014
  Serious: Yes (Other)
  Sender: FDA-Public Use
  Company Number: US-GILEAD-2021-0522290

PATIENT
  Age: 41 Year
  Sex: Male
  Weight: 58.96 kg

DRUGS (17)
  1. TRUVADA [Suspect]
     Active Substance: EMTRICITABINE\TENOFOVIR DISOPROXIL FUMARATE
     Indication: HIV INFECTION
     Dosage: UNK
     Route: 048
     Dates: start: 2005
  2. SYMBICORT [Concomitant]
     Active Substance: BUDESONIDE\FORMOTEROL FUMARATE DIHYDRATE
  3. VENTOLIN [Concomitant]
     Active Substance: ALBUTEROL SULFATE
  4. COMBIVIR [Concomitant]
     Active Substance: LAMIVUDINE\ZIDOVUDINE
  5. FLU VACCINE VII [Concomitant]
     Active Substance: INFLUENZA VIRUS VACCINE
  6. VIRTUSSIN AC [Concomitant]
     Active Substance: CODEINE PHOSPHATE\GUAIFENESIN
  7. ZOLOFT [Concomitant]
     Active Substance: SERTRALINE HYDROCHLORIDE
  8. KALETRA [Concomitant]
     Active Substance: LOPINAVIR\RITONAVIR
  9. NORVIR [Concomitant]
     Active Substance: RITONAVIR
  10. RITONAVIR. [Concomitant]
     Active Substance: RITONAVIR
  11. TRUVADA [Suspect]
     Active Substance: EMTRICITABINE\TENOFOVIR DISOPROXIL FUMARATE
     Dosage: UNK
     Route: 048
     Dates: start: 200408, end: 201505
  12. ATAZANAVIR. [Concomitant]
     Active Substance: ATAZANAVIR
  13. REYATAZ [Concomitant]
     Active Substance: ATAZANAVIR SULFATE
  14. ACICLOVIR [Concomitant]
     Active Substance: ACYCLOVIR
  15. ISENTRESS [Concomitant]
     Active Substance: RALTEGRAVIR POTASSIUM
  16. ALBUTEROL [SALBUTAMOL] [Concomitant]
     Active Substance: ALBUTEROL
  17. PRAVASTATIN. [Concomitant]
     Active Substance: PRAVASTATIN

REACTIONS (10)
  - Osteoporosis [Not Recovered/Not Resolved]
  - Clavicle fracture [Recovered/Resolved]
  - Bone density decreased [Unknown]
  - Osteopenia [Not Recovered/Not Resolved]
  - Renal impairment [Not Recovered/Not Resolved]
  - Emotional distress [Not Recovered/Not Resolved]
  - Anxiety [Not Recovered/Not Resolved]
  - Pain [Not Recovered/Not Resolved]
  - Wrist fracture [Not Recovered/Not Resolved]
  - Anhedonia [Not Recovered/Not Resolved]

NARRATIVE: CASE EVENT DATE: 201106
